FAERS Safety Report 8856351 (Version 1)
Quarter: 2012Q4

REPORT INFORMATION
  Report Type: 
  Country: US (occurrence: US)
  Receive Date: 20121023
  Receipt Date: 20121023
  Transmission Date: 20130627
  Serious: No
  Sender: FDA-Public Use
  Company Number: US-AMGEN-USASP2012057009

PATIENT
  Sex: Female

DRUGS (8)
  1. ENBREL [Suspect]
     Indication: PRODUCT USED FOR UNKNOWN INDICATION
     Dosage: 50 mg, qwk
     Route: 058
  2. METHOTREXATE [Concomitant]
     Dosage: 2.5 mg, UNK
  3. FOLIC ACID [Concomitant]
     Dosage: UNK
  4. LEUCOVORIN /00566701/ [Concomitant]
     Dosage: 350 mg, UNK
  5. LIPITOR [Concomitant]
     Dosage: 10 mg, UNK
  6. NAPROXEN SOD [Concomitant]
     Dosage: 220 mg, UNK
  7. CALCIUM [Concomitant]
     Dosage: 500 mg, UNK
  8. FAMOTIDINE [Concomitant]
     Dosage: 10 mg, UNK

REACTIONS (2)
  - Injection site erythema [Recovered/Resolved]
  - Injection site induration [Recovered/Resolved]
